FAERS Safety Report 17770787 (Version 1)
Quarter: 2020Q2

REPORT INFORMATION
  Report Type: Spontaneous
  Country: US (occurrence: US)
  Receive Date: 20200512
  Receipt Date: 20200512
  Transmission Date: 20200714
  Serious: Yes (Other)
  Sender: FDA-Public Use
  Company Number: None

PATIENT

DRUGS (1)
  1. PROLIA [Suspect]
     Active Substance: DENOSUMAB
     Indication: OSTEOPOROSIS
     Route: 061

REACTIONS (8)
  - Weight increased [None]
  - Insomnia [None]
  - Arthralgia [None]
  - Pain [None]
  - Myalgia [None]
  - Cough [None]
  - Hypertension [None]
  - Eye disorder [None]

NARRATIVE: CASE EVENT DATE: 20200430
